FAERS Safety Report 8063022-8 (Version None)
Quarter: 2012Q1

REPORT INFORMATION
  Report Type: 
  Country: None (occurrence: None)
  Receive Date: 20120123
  Receipt Date: 20120117
  Transmission Date: 20120608
  Serious: Yes (Other)
  Sender: FDA-Public Use
  Company Number: US-PFIZER INC-2011267513

PATIENT
  Sex: Female

DRUGS (10)
  1. BYSTOLIC [Concomitant]
     Dosage: 10 MG, UNK
  2. ZYPREXA [Concomitant]
     Dosage: UNK
  3. CADUET [Suspect]
     Indication: BLOOD PRESSURE ABNORMAL
     Dosage: [AMLODIPINE 10 MG] / [ATORVASTATIN 20 MG], DAILY
     Dates: start: 20110730, end: 20111001
  4. ENALAPRIL MALEATE [Concomitant]
     Dosage: 10 MG, UNK
  5. RISPERIDONE [Concomitant]
     Dosage: 0.5 MG, UNK
  6. FAMOTIDINE [Concomitant]
     Dosage: 20 MG, UNK
  7. ATENOLOL [Concomitant]
     Dosage: 25 MG, UNK
  8. HYDROCHLOROTHIAZIDE [Concomitant]
     Dosage: UNK
  9. PREDNISONE [Concomitant]
     Dosage: 20 MG, UNK
  10. CADUET [Suspect]
     Indication: BLOOD CHOLESTEROL INCREASED
     Dosage: 10 MG, DAILY
     Route: 048
     Dates: start: 20110730

REACTIONS (7)
  - PAIN [None]
  - MALAISE [None]
  - CHEST PAIN [None]
  - HEADACHE [None]
  - BRAIN INJURY [None]
  - DRUG INEFFECTIVE [None]
  - INJURY [None]
